FAERS Safety Report 10190758 (Version 1)
Quarter: 2014Q2

REPORT INFORMATION
  Report Type: Spontaneous
  Country: US (occurrence: US)
  Receive Date: 20140523
  Receipt Date: 20140523
  Transmission Date: 20141212
  Serious: No
  Sender: FDA-Public Use
  Company Number: US-TEVA-425191USA

PATIENT
  Sex: 0

DRUGS (1)
  1. HYDRALAZINE [Suspect]

REACTIONS (1)
  - Rash [Unknown]
